FAERS Safety Report 9770160 (Version 1)
Quarter: 2013Q4

REPORT INFORMATION
  Report Type: Spontaneous
  Country: US (occurrence: US)
  Receive Date: 20131218
  Receipt Date: 20131218
  Transmission Date: 20140711
  Serious: Yes (Other)
  Sender: FDA-Public Use
  Company Number: US-ELI_LILLY_AND_COMPANY-US201312004776

PATIENT
  Age: 39 Year
  Sex: Female

DRUGS (5)
  1. HUMATROPE [Suspect]
     Indication: GROWTH HORMONE DEFICIENCY
     Dosage: 0.2 MG, UNK
     Route: 065
     Dates: start: 20131010
  2. HUMATROPE [Suspect]
     Dosage: 0.2 MG, QD
     Route: 065
     Dates: start: 20131108
  3. SEPTRA DS [Concomitant]
     Indication: PRODUCT USED FOR UNKNOWN INDICATION
     Dosage: 1 DF, BID
     Route: 048
  4. MALARONE [Concomitant]
     Indication: PRODUCT USED FOR UNKNOWN INDICATION
     Dosage: UNK, BID
     Route: 048
  5. AMINOCAPROIC ACID [Concomitant]
     Indication: PRODUCT USED FOR UNKNOWN INDICATION
     Dosage: 500 MG, OTHER
     Route: 065

REACTIONS (3)
  - Diarrhoea haemorrhagic [Unknown]
  - Emotional disorder [Unknown]
  - Nightmare [Unknown]
